FAERS Safety Report 6821515-2 (Version None)
Quarter: 2010Q3

REPORT INFORMATION
  Report Type: 
  Country: None (occurrence: None)
  Receive Date: 20100707
  Receipt Date: 20081120
  Transmission Date: 20110219
  Serious: No
  Sender: FDA-Public Use
  Company Number: US-PFIZER INC-2008097742

PATIENT
  Age: 60 Year
  Sex: Female

DRUGS (1)
  1. ZOLOFT [Suspect]
     Indication: ABNORMAL BEHAVIOUR

REACTIONS (1)
  - ABNORMAL BEHAVIOUR [None]
